FAERS Safety Report 8189533-2 (Version None)
Quarter: 2012Q1

REPORT INFORMATION
  Report Type: 
  Country: None (occurrence: None)
  Receive Date: 20120307
  Receipt Date: 20120216
  Transmission Date: 20120608
  Serious: Yes (Hospitalization, Other)
  Sender: FDA-Public Use
  Company Number: US-BAYER-2011-049281

PATIENT
  Age: 30 Year
  Sex: Female
  Weight: 84 kg

DRUGS (2)
  1. YAZ [Suspect]
     Indication: MENSTRUATION IRREGULAR
     Dosage: UNK
     Dates: start: 20070101, end: 20090101
  2. ADIPEX [Concomitant]
     Dosage: UNK
     Route: 048
     Dates: start: 20090601

REACTIONS (4)
  - PAIN [None]
  - DEEP VEIN THROMBOSIS [None]
  - FEAR [None]
  - PULMONARY EMBOLISM [None]
